FAERS Safety Report 20848040 (Version 2)
Quarter: 2022Q2

REPORT INFORMATION
  Report Type: Spontaneous
  Country: RO (occurrence: RO)
  Receive Date: 20220519
  Receipt Date: 20220523
  Transmission Date: 20220720
  Serious: Yes (Life-Threatening, Hospitalization, Other)
  Sender: FDA-Public Use
  Company Number: RO-MLMSERVICE-20220502-3535983-1

PATIENT
  Age: 36 Year
  Sex: Female

DRUGS (14)
  1. TRAMADOL [Suspect]
     Active Substance: TRAMADOL
     Indication: Postoperative analgesia
     Dosage: 100 MG
     Route: 065
     Dates: start: 202006
  2. TRAMADOL [Suspect]
     Active Substance: TRAMADOL
     Indication: Prophylaxis
  3. METOCLOPRAMIDE [Suspect]
     Active Substance: METOCLOPRAMIDE
     Indication: Product used for unknown indication
     Dosage: UNK
     Route: 065
  4. PITOFENONE [Suspect]
     Active Substance: PITOFENONE
     Indication: Product used for unknown indication
     Dosage: UNK
     Route: 065
  5. FENTANYL [Suspect]
     Active Substance: FENTANYL
     Indication: Induction of anaesthesia
     Dosage: 0.2 MICROGRAM/KILOGRAM
     Route: 065
     Dates: start: 20200622
  6. GRANISETRON [Suspect]
     Active Substance: GRANISETRON
     Indication: Prophylaxis of nausea and vomiting
     Dosage: 1 MG
     Route: 065
     Dates: start: 202006
  7. GRANISETRON [Suspect]
     Active Substance: GRANISETRON
     Indication: Prophylaxis of nausea and vomiting
  8. METAMIZOLE [Concomitant]
     Active Substance: METAMIZOLE
     Indication: Postoperative analgesia
     Dosage: 1 GRAM
     Route: 065
     Dates: start: 202006
  9. METAMIZOLE [Concomitant]
     Active Substance: METAMIZOLE
     Indication: Prophylaxis
  10. ACETAMINOPHEN [Concomitant]
     Active Substance: ACETAMINOPHEN
     Indication: Postoperative analgesia
     Dosage: 1 GRAM
     Route: 065
     Dates: start: 202006
  11. ACETAMINOPHEN [Concomitant]
     Active Substance: ACETAMINOPHEN
     Indication: Prophylaxis
  12. LIDOCAINE [Concomitant]
     Active Substance: LIDOCAINE
     Indication: Anaesthesia
     Dosage: 1 UNK
     Route: 065
  13. PROPOFOL [Concomitant]
     Active Substance: PROPOFOL
     Indication: Anaesthesia
     Dosage: 1 UNK
     Route: 065
  14. SEVOFLURANE [Concomitant]
     Active Substance: SEVOFLURANE
     Indication: Anaesthesia
     Dosage: UNK
     Route: 065

REACTIONS (3)
  - Disseminated intravascular coagulation [Recovered/Resolved]
  - Serotonin syndrome [Recovered/Resolved]
  - Drug hypersensitivity [Unknown]

NARRATIVE: CASE EVENT DATE: 20200601
